FAERS Safety Report 16540076 (Version 2)
Quarter: 2019Q3

REPORT INFORMATION
  Report Type: Report from Study
  Country: BR (occurrence: BR)
  Receive Date: 20190708
  Receipt Date: 20190717
  Transmission Date: 20191004
  Serious: Yes (Hospitalization)
  Sender: FDA-Public Use
  Company Number: BR-B.I. PHARMACEUTICALS,INC./RIDGEFIELD-2018-BI-051484

PATIENT
  Age: 72 Year
  Sex: Male
  Weight: 48 kg

DRUGS (20)
  1. OFEV [Suspect]
     Active Substance: NINTEDANIB
     Route: 048
     Dates: start: 20181010, end: 20181017
  2. OFEV [Suspect]
     Active Substance: NINTEDANIB
     Route: 048
     Dates: start: 20181009
  3. METFORMINA [Concomitant]
     Active Substance: METFORMIN HYDROCHLORIDE
     Indication: TYPE 2 DIABETES MELLITUS
     Route: 048
     Dates: start: 2013
  4. PAXTRAT [Concomitant]
     Active Substance: PAROXETINE HYDROCHLORIDE
     Indication: SEDATIVE THERAPY
     Route: 048
     Dates: start: 201812
  5. ULTIBRO BREEZHALER [Concomitant]
     Active Substance: GLYCOPYRRONIUM\INDACATEROL
     Indication: PULMONARY FIBROSIS
     Dosage: DOSE: 110/50 MICROGRAM
     Route: 048
  6. PONDERA [Concomitant]
     Active Substance: PAROXETINE HYDROCHLORIDE
     Indication: SEDATIVE THERAPY
     Route: 048
  7. OFEV [Suspect]
     Active Substance: NINTEDANIB
     Indication: IDIOPATHIC PULMONARY FIBROSIS
     Route: 048
     Dates: start: 20180809, end: 20180902
  8. GLIMEPIRIDA [Concomitant]
     Active Substance: GLIMEPIRIDE
     Route: 048
  9. OFEV [Suspect]
     Active Substance: NINTEDANIB
     Route: 048
     Dates: start: 20180912
  10. OFEV [Suspect]
     Active Substance: NINTEDANIB
     Route: 048
     Dates: start: 20190212
  11. GLIMEPIRIDA [Concomitant]
     Active Substance: GLIMEPIRIDE
     Indication: TYPE 2 DIABETES MELLITUS
     Route: 048
  12. CARDIZEM [Concomitant]
     Active Substance: DILTIAZEM HYDROCHLORIDE
     Indication: AORTIC STENOSIS
     Route: 065
     Dates: start: 201703
  13. ROSUVASTATINA [Concomitant]
     Active Substance: ROSUVASTATIN
     Indication: DYSLIPIDAEMIA
     Route: 065
     Dates: start: 201703
  14. OFEV [Suspect]
     Active Substance: NINTEDANIB
     Route: 048
     Dates: start: 20181002, end: 20181008
  15. OFEV [Suspect]
     Active Substance: NINTEDANIB
     Route: 048
     Dates: end: 20190211
  16. CARDIZEM [Concomitant]
     Active Substance: DILTIAZEM HYDROCHLORIDE
     Indication: ARRHYTHMIA
     Route: 048
     Dates: start: 201808, end: 2018
  17. ROSUVASTATINA [Concomitant]
     Active Substance: ROSUVASTATIN
     Indication: AORTIC STENOSIS
  18. ULTIBRO BREEZHALER [Concomitant]
     Active Substance: GLYCOPYRRONIUM\INDACATEROL
     Indication: DRUG THERAPY
  19. ZOLPIDEM [Concomitant]
     Active Substance: ZOLPIDEM TARTRATE
     Indication: SLEEP DISORDER
     Route: 048
     Dates: start: 201812
  20. HISTAMIN [Concomitant]
     Indication: HYPERSENSITIVITY
     Route: 048

REACTIONS (38)
  - Dysentery [Recovered/Resolved]
  - Amylase abnormal [Recovered/Resolved]
  - Aspartate aminotransferase increased [Recovered/Resolved]
  - Amylase increased [Recovered/Resolved]
  - Skin haemorrhage [Not Recovered/Not Resolved]
  - General physical condition abnormal [Not Recovered/Not Resolved]
  - Gamma-glutamyltransferase abnormal [Recovered/Resolved]
  - Alanine aminotransferase increased [Recovered/Resolved]
  - Pyrexia [Not Recovered/Not Resolved]
  - Sluggishness [Recovered/Resolved]
  - Hypothermia [Unknown]
  - Constipation [Not Recovered/Not Resolved]
  - Hepatic enzyme increased [Recovered/Resolved]
  - Blood glucose increased [Unknown]
  - Hypersensitivity [Not Recovered/Not Resolved]
  - Drug-induced liver injury [Not Recovered/Not Resolved]
  - Malaise [Recovered/Resolved]
  - Tremor [Recovered/Resolved]
  - Constipation [Not Recovered/Not Resolved]
  - Fatigue [Not Recovered/Not Resolved]
  - Oxygen consumption increased [Unknown]
  - Alanine aminotransferase increased [Recovered/Resolved]
  - Gamma-glutamyltransferase increased [Recovered/Resolved]
  - Retching [Not Recovered/Not Resolved]
  - Ageusia [Not Recovered/Not Resolved]
  - Bacteraemia [Recovered/Resolved]
  - Aspartate aminotransferase increased [Recovered/Resolved]
  - Pyrexia [Not Recovered/Not Resolved]
  - Insomnia [Unknown]
  - Vomiting [Not Recovered/Not Resolved]
  - Anxiety [Not Recovered/Not Resolved]
  - Aspartate aminotransferase abnormal [Recovered/Resolved]
  - Alanine aminotransferase abnormal [Recovered/Resolved]
  - Body temperature increased [Unknown]
  - Nausea [Unknown]
  - Retching [Not Recovered/Not Resolved]
  - Pyrexia [Recovered/Resolved]
  - Decreased appetite [Not Recovered/Not Resolved]

NARRATIVE: CASE EVENT DATE: 201808
